FAERS Safety Report 18233195 (Version 1)
Quarter: 2020Q3

REPORT INFORMATION
  Report Type: Spontaneous
  Country: US (occurrence: US)
  Receive Date: 20200904
  Receipt Date: 20200904
  Transmission Date: 20201103
  Serious: Yes (Hospitalization)
  Sender: FDA-Public Use
  Company Number: None

PATIENT
  Sex: Female

DRUGS (2)
  1. HUMIRA [Suspect]
     Active Substance: ADALIMUMAB
     Indication: COLITIS
     Dosage: ?          OTHER FREQUENCY:EVERY 7 DAYS;?
     Route: 058
     Dates: start: 20160312
  2. BUDESONIDE, PROCTOFOAM, DEXILANT, PROBIOTIC, MELATONIN, AMITRIPTYLINE [Concomitant]

REACTIONS (4)
  - Diarrhoea [None]
  - Weight abnormal [None]
  - Abdominal pain [None]
  - Vomiting [None]
